FAERS Safety Report 10686490 (Version 5)
Quarter: 2016Q1

REPORT INFORMATION
  Report Type: Spontaneous
  Country: US (occurrence: US)
  Receive Date: 20150101
  Receipt Date: 20160113
  Transmission Date: 20160525
  Serious: Yes (Other)
  Sender: FDA-Public Use
  Company Number: US-GLAXOSMITHKLINE-US2014044269

PATIENT
  Age: 66 Year
  Sex: Male

DRUGS (11)
  1. BACILLUS CALMETTE-GUERIN [Concomitant]
     Active Substance: BCG VACCINE
  2. IBUPROFEN. [Concomitant]
     Active Substance: IBUPROFEN
  3. TEMOVATE [Concomitant]
     Active Substance: CLOBETASOL PROPIONATE
  4. NAPROSYN [Concomitant]
     Active Substance: NAPROXEN
  5. AVOLVE [Suspect]
     Active Substance: DUTASTERIDE
     Indication: PROSTATOMEGALY
     Dosage: 0.5 MG, QD
     Route: 048
     Dates: start: 20131206
  6. ACETAMINOPHEN. [Concomitant]
     Active Substance: ACETAMINOPHEN
  7. MELOXICAM. [Concomitant]
     Active Substance: MELOXICAM
  8. TAMSLON [Concomitant]
     Active Substance: TAMSULOSIN
  9. DESONIDE CREAM [Concomitant]
  10. MELOXICAM. [Concomitant]
     Active Substance: MELOXICAM
  11. ASPIRIN (BABY) [Concomitant]
     Active Substance: ASPIRIN

REACTIONS (7)
  - Bladder cancer [Not Recovered/Not Resolved]
  - Vascular cauterisation [Recovered/Resolved]
  - Blood urine present [Recovered/Resolved]
  - Neuralgia [Not Recovered/Not Resolved]
  - Pruritus [Recovered/Resolved]
  - Neuropathy peripheral [Not Recovered/Not Resolved]
  - Emergency care examination [Recovered/Resolved]

NARRATIVE: CASE EVENT DATE: 2014
